FAERS Safety Report 13185461 (Version 1)
Quarter: 2017Q1

REPORT INFORMATION
  Report Type: Report from Study
  Country: VE (occurrence: VE)
  Receive Date: 20170203
  Receipt Date: 20170203
  Transmission Date: 20170428
  Serious: Yes (Hospitalization, Other)
  Sender: FDA-Public Use
  Company Number: PHHY2017VE004941

PATIENT
  Age: 63 Year
  Sex: Male

DRUGS (4)
  1. AFINITOR [Suspect]
     Active Substance: EVEROLIMUS
     Indication: PANCREATIC NEUROENDOCRINE TUMOUR
     Dosage: 5 MG, QD
     Route: 048
  2. SANDOSTATIN LAR DEPOT [Suspect]
     Active Substance: OCTREOTIDE ACETATE
     Indication: PANCREATIC NEUROENDOCRINE TUMOUR
  3. AFINITOR [Suspect]
     Active Substance: EVEROLIMUS
     Indication: ABDOMINAL NEOPLASM
     Dosage: 10 MG, QID (EVERY OTHER DAY)
     Route: 048
     Dates: start: 20160923
  4. SANDOSTATIN LAR DEPOT [Suspect]
     Active Substance: OCTREOTIDE ACETATE
     Indication: ABDOMINAL NEOPLASM
     Dosage: 20 MG, QMO
     Route: 030
     Dates: start: 20150425

REACTIONS (10)
  - General physical health deterioration [Recovering/Resolving]
  - Inappropriate schedule of drug administration [Unknown]
  - Back pain [Recovered/Resolved]
  - Bacteriuria [Recovering/Resolving]
  - Hyperglycaemia [Recovering/Resolving]
  - Somnolence [Unknown]
  - Malaise [Unknown]
  - Asthenia [Unknown]
  - Product use issue [Unknown]
  - Depressed mood [Unknown]

NARRATIVE: CASE EVENT DATE: 20160923
